FAERS Safety Report 22230525 (Version 1)
Quarter: 2023Q2

REPORT INFORMATION
  Report Type: Spontaneous
  Country: US (occurrence: US)
  Receive Date: 20230420
  Receipt Date: 20230420
  Transmission Date: 20230722
  Serious: Yes (Other)
  Sender: FDA-Public Use
  Company Number: US-SAREPTA THERAPEUTICS INC.-SRP2023-003255

PATIENT
  Age: 4 Year
  Sex: Male
  Weight: 13.83 kg

DRUGS (7)
  1. EXONDYS 51 [Suspect]
     Active Substance: ETEPLIRSEN
     Indication: Duchenne muscular dystrophy
     Dosage: 400 MILLIGRAM, WEEKLY
     Route: 042
     Dates: start: 20220503, end: 20230330
  2. ALBUTEROL SULFATE [Concomitant]
     Active Substance: ALBUTEROL SULFATE
     Indication: Respiratory tract infection
     Dosage: 90 INHALA AS NEEDED 2 PUFFS Q4-6H PRN
     Dates: start: 20221113
  3. FLOVENT HFA [Concomitant]
     Active Substance: FLUTICASONE PROPIONATE
     Indication: Product used for unknown indication
     Dosage: 44 MCG/ACT INHALA EVERY MORNING 2 PUFF
     Dates: start: 20221113
  4. FLONASE ALLERGY RELIEF [Concomitant]
     Active Substance: FLUTICASONE PROPIONATE
     Indication: Product used for unknown indication
     Dosage: 50 MCG/ACT NASAL DAILY 1 SPRAY EACH NOSTRIL
     Route: 045
     Dates: start: 20221113
  5. IBUPROFEN [Concomitant]
     Active Substance: IBUPROFEN
     Indication: Pain
     Dosage: 100 MG/5ML Q6H PRN
     Route: 048
     Dates: start: 20220603
  6. ZYRTEC [Concomitant]
     Active Substance: CETIRIZINE HYDROCHLORIDE
     Indication: Hypersensitivity
     Dosage: 2.5 MILLIGRAM, QD
     Dates: start: 20220603
  7. EMFLAZA [Concomitant]
     Active Substance: DEFLAZACORT
     Indication: Product used for unknown indication
     Dosage: 0.53 MILLILITER, QD
     Route: 048
     Dates: start: 20220907

REACTIONS (2)
  - Croup infectious [Unknown]
  - Rhinovirus infection [Unknown]

NARRATIVE: CASE EVENT DATE: 20230406
